FAERS Safety Report 9088914 (Version 1)
Quarter: 2013Q1

REPORT INFORMATION
  Report Type: Spontaneous
  Country: US (occurrence: US)
  Receive Date: 20130201
  Receipt Date: 20130201
  Transmission Date: 20140127
  Serious: Yes (Other)
  Sender: FDA-Public Use
  Company Number: PHHY2013US007032

PATIENT
  Age: 40 Year
  Sex: Male

DRUGS (8)
  1. BUFFERIN REGULAR STRENGTH [Suspect]
     Indication: HEADACHE
     Dosage: DOSAGE ON BOTTLE, AS NEEDED
     Route: 048
  2. BUFFERIN REGULAR STRENGTH [Suspect]
     Indication: MIGRAINE
  3. BUFFERIN REGULAR STRENGTH [Suspect]
     Indication: PAIN
  4. EXCEDRIN EXTRA STRENGTH [Suspect]
     Indication: HEADACHE
     Dosage: DOSAGE ON BOTTLE, AS NEEDED
     Route: 048
  5. EXCEDRIN EXTRA STRENGTH [Suspect]
     Indication: MIGRAINE
  6. EXCEDRIN MIGRAINE [Suspect]
     Indication: HEADACHE
     Route: 048
     Dates: start: 2004, end: 20130122
  7. EXCEDRIN MIGRAINE [Suspect]
     Indication: MIGRAINE
  8. BACTRIM [Concomitant]
     Indication: ANTIBIOTIC THERAPY
     Dosage: AS NEEDED
     Route: 048
     Dates: start: 2008

REACTIONS (29)
  - Neoplasm malignant [Not Recovered/Not Resolved]
  - Cyst [Not Recovered/Not Resolved]
  - Gallbladder perforation [Unknown]
  - Blood urine present [Unknown]
  - Tongue haemorrhage [Unknown]
  - Superficial injury of eye [Unknown]
  - Asthenopia [Not Recovered/Not Resolved]
  - Liver disorder [Unknown]
  - Haemorrhage [Not Recovered/Not Resolved]
  - Acne [Not Recovered/Not Resolved]
  - Abnormal sensation in eye [Not Recovered/Not Resolved]
  - Tension headache [Unknown]
  - Stress [Unknown]
  - Asthenia [Unknown]
  - Glossodynia [Unknown]
  - Jaw disorder [Unknown]
  - Pruritus [Unknown]
  - Oral pain [Unknown]
  - Teething [Unknown]
  - Tooth disorder [Unknown]
  - Migraine [Unknown]
  - Chromaturia [Unknown]
  - Urine abnormality [Unknown]
  - Tongue disorder [Not Recovered/Not Resolved]
  - Urticaria [Recovered/Resolved]
  - Feeling abnormal [Unknown]
  - Skin burning sensation [Unknown]
  - Incorrect dose administered [Unknown]
  - Incorrect drug administration duration [Unknown]
